FAERS Safety Report 7384712-6 (Version None)
Quarter: 2011Q1

REPORT INFORMATION
  Report Type: 
  Country: None (occurrence: None)
  Receive Date: 20110330
  Receipt Date: 20110318
  Transmission Date: 20110831
  Serious: Yes (Other)
  Sender: FDA-Public Use
  Company Number: PHHY2011BR22952

PATIENT
  Sex: Female
  Weight: 60 kg

DRUGS (6)
  1. EXELON [Suspect]
     Dosage: 18MG/10CM2, ONE PATCH A DAY
     Route: 062
     Dates: start: 20101001, end: 20110201
  2. CITALOPRAM HYDROBROMIDE [Concomitant]
     Indication: DEPRESSION
     Dosage: 1 DF, QD
     Route: 048
     Dates: start: 20090101
  3. EXELON [Suspect]
     Indication: DEMENTIA ALZHEIMER'S TYPE
     Dosage: 1 DF, UNK
     Route: 062
     Dates: start: 20100101
  4. EXELON [Suspect]
     Dosage: 27MG/15CM2, ONE PATCH A DAY
     Route: 062
     Dates: start: 20110201
  5. METFORMIN [Concomitant]
     Indication: DIABETES MELLITUS
     Dosage: 1 DF, ONE TABLET A DAY AFTER THE LUNCH
     Route: 048
  6. ACETYLSALICYLIC ACID [Concomitant]
     Indication: ANTIPLATELET THERAPY
     Route: 048

REACTIONS (8)
  - VOMITING [None]
  - BLOOD PRESSURE INCREASED [None]
  - BALANCE DISORDER [None]
  - PANIC REACTION [None]
  - FEAR [None]
  - INSOMNIA [None]
  - ABNORMAL BEHAVIOUR [None]
  - LABYRINTHITIS [None]
